FAERS Safety Report 4645879-3 (Version None)
Quarter: 2005Q2

REPORT INFORMATION
  Report Type: 
  Country: None (occurrence: None)
  Receive Date: 20050427
  Receipt Date: 20050419
  Transmission Date: 20051028
  Serious: Yes (Death)
  Sender: FDA-Public Use
  Company Number: ES-JNJFOC-20050404435

PATIENT
  Age: 57 Year
  Sex: Male

DRUGS (6)
  1. DURAGESIC-100 [Suspect]
     Route: 062
     Dates: end: 20040301
  2. FENTANYL [Concomitant]
     Indication: PAIN
     Route: 065
  3. GABAPENTIN [Concomitant]
     Route: 065
  4. IBUPROFEN [Concomitant]
     Route: 065
  5. LAXANTS [Concomitant]
     Route: 065
  6. METHYLPREDNISOLONE [Concomitant]
     Route: 049

REACTIONS (2)
  - CONSTIPATION [None]
  - MALIGNANT NEOPLASM PROGRESSION [None]
